FAERS Safety Report 26163210 (Version 1)
Quarter: 2025Q4

REPORT INFORMATION
  Report Type: Spontaneous
  Country: GB (occurrence: GB)
  Receive Date: 20251216
  Receipt Date: 20251216
  Transmission Date: 20260118
  Serious: Yes (Life-Threatening, Other)
  Sender: PFIZER
  Company Number: None

PATIENT
  Age: 36 Year
  Sex: Female
  Weight: 78 kg

DRUGS (4)
  1. CARBOPLATIN [Suspect]
     Active Substance: CARBOPLATIN
     Dosage: UNK, CYCLIC
     Dates: start: 20251211, end: 20251211
  2. TRASTUZUMAB [Concomitant]
     Active Substance: TRASTUZUMAB
     Dosage: UNK, CYCLIC
  3. PERTUZUMAB [Concomitant]
     Active Substance: PERTUZUMAB
     Dosage: UNK, CYCLIC
  4. DOCETAXEL [Concomitant]
     Active Substance: DOCETAXEL
     Dosage: UNK, CYCLIC

REACTIONS (4)
  - Anaphylactic reaction [Recovering/Resolving]
  - Flushing [Recovering/Resolving]
  - Tachycardia [Recovering/Resolving]
  - Pain [Recovering/Resolving]

NARRATIVE: CASE EVENT DATE: 20251211
